FAERS Safety Report 20502225 (Version 2)
Quarter: 2022Q2

REPORT INFORMATION
  Report Type: Spontaneous
  Country: US (occurrence: US)
  Receive Date: 20220222
  Receipt Date: 20220404
  Transmission Date: 20220721
  Serious: No
  Sender: FDA-Public Use
  Company Number: US-SA-SAC20220217001036

PATIENT
  Age: 61 Year
  Sex: Female

DRUGS (22)
  1. DUPIXENT [Suspect]
     Active Substance: DUPILUMAB
     Indication: Multiple sclerosis
     Dosage: 300 MG, QOW
     Route: 058
     Dates: start: 20220216
  2. DUPIXENT [Suspect]
     Active Substance: DUPILUMAB
     Indication: Asthma
  3. ADVIL [Concomitant]
     Active Substance: IBUPROFEN
     Dosage: 200 MG
  4. ALTACE [Concomitant]
     Active Substance: RAMIPRIL
     Dosage: 81 MG
  5. ASPIRIN [Concomitant]
     Active Substance: ASPIRIN
     Indication: Pain
     Dosage: 81 MG
  6. GABAPENTIN [Concomitant]
     Active Substance: GABAPENTIN
     Dosage: 10 MG
  7. GLUCOTROL [Concomitant]
     Active Substance: GLIPIZIDE
     Indication: Type 2 diabetes mellitus
     Dosage: 200 MG
  8. IBUPROFEN [Concomitant]
     Active Substance: IBUPROFEN
     Dosage: 20 MG
  9. LOVASTATIN [Concomitant]
     Active Substance: LOVASTATIN
     Dosage: 750 MG
  10. METFORMIN [Concomitant]
     Active Substance: METFORMIN HYDROCHLORIDE
     Indication: Type 2 diabetes mellitus
  11. ONGLYZA [SAXAGLIPTIN] [Concomitant]
     Indication: Type 2 diabetes mellitus
     Dosage: 5 MG
  12. PRED FORTE [Concomitant]
     Active Substance: PREDNISOLONE ACETATE
     Indication: Multiple sclerosis
     Dosage: 5 MG
  13. PRED FORTE [Concomitant]
     Active Substance: PREDNISOLONE ACETATE
     Indication: Asthma
  14. PROAIR HFA [Concomitant]
     Active Substance: ALBUTEROL SULFATE
     Indication: Asthma
     Dosage: 25 MG
  15. RAMIPRIL [Concomitant]
     Active Substance: RAMIPRIL
     Dosage: 25 MG
  16. TECFIDERA [Concomitant]
     Active Substance: DIMETHYL FUMARATE
  17. TRADJENTA [Concomitant]
     Active Substance: LINAGLIPTIN
     Indication: Type 2 diabetes mellitus
     Dosage: 5 MG
  18. TRULICITY [Concomitant]
     Active Substance: DULAGLUTIDE
     Indication: Type 2 diabetes mellitus
     Dosage: 5 MG
  19. VITAMIN D3 [Concomitant]
     Active Substance: CHOLECALCIFEROL
     Dosage: 5 MG
  20. SINGULAIR [Concomitant]
     Active Substance: MONTELUKAST SODIUM
  21. CYMBALTA [Concomitant]
     Active Substance: DULOXETINE HYDROCHLORIDE
  22. VITAMINS [Concomitant]
     Active Substance: VITAMINS

REACTIONS (4)
  - Pain [Not Recovered/Not Resolved]
  - Fatigue [Not Recovered/Not Resolved]
  - Impaired quality of life [Not Recovered/Not Resolved]
  - Product use in unapproved indication [Unknown]
